FAERS Safety Report 20547023 (Version 1)
Quarter: 2022Q1

REPORT INFORMATION
  Report Type: Spontaneous
  Country: US (occurrence: None)
  Receive Date: 20220303
  Receipt Date: 20220303
  Transmission Date: 20220424
  Serious: Yes (Other)
  Sender: FDA-Public Use
  Company Number: None

PATIENT
  Age: 77 Year
  Sex: Male
  Weight: 67.5 kg

DRUGS (4)
  1. CILOSTAZOL [Suspect]
     Active Substance: CILOSTAZOL
     Indication: Cerebrovascular accident prophylaxis
     Dosage: OTHER QUANTITY : 1 TABLET(S);?FREQUENCY : TWICE A DAY;?
     Route: 048
  2. LOSARTAN [Concomitant]
     Active Substance: LOSARTAN
  3. FISH OIL [Concomitant]
     Active Substance: FISH OIL
  4. MINERALS\VITAMINS [Concomitant]
     Active Substance: MINERALS\VITAMINS

REACTIONS (3)
  - Heart rate increased [None]
  - Extrasystoles [None]
  - Headache [None]

NARRATIVE: CASE EVENT DATE: 20220226
